FAERS Safety Report 6531754-6 (Version None)
Quarter: 2010Q1

REPORT INFORMATION
  Report Type: 
  Country: None (occurrence: None)
  Receive Date: 20100108
  Receipt Date: 20100106
  Transmission Date: 20100710
  Serious: Yes (Hospitalization, Other)
  Sender: FDA-Public Use
  Company Number: A0834820A

PATIENT
  Age: 53 Year
  Sex: Female
  Weight: 61.4 kg

DRUGS (6)
  1. LAMICTAL [Suspect]
     Route: 048
     Dates: start: 20090401, end: 20090101
  2. DEPAKOTE [Suspect]
     Route: 048
     Dates: start: 19820101
  3. KEPPRA [Concomitant]
     Dates: start: 20090101
  4. LEVOTHYROXINE SODIUM [Concomitant]
  5. ROSUVASTATIN [Concomitant]
  6. DIABETES MEDICATION [Concomitant]

REACTIONS (5)
  - ABASIA [None]
  - APHASIA [None]
  - CONFUSIONAL STATE [None]
  - PERFORMANCE STATUS DECREASED [None]
  - TREMOR [None]
